FAERS Safety Report 13520636 (Version 2)
Quarter: 2017Q3

REPORT INFORMATION
  Report Type: Report from Study
  Country: US (occurrence: US)
  Receive Date: 20170508
  Receipt Date: 20170808
  Transmission Date: 20171127
  Serious: Yes (Hospitalization, Other)
  Sender: FDA-Public Use
  Company Number: US-ROCHE-1548332

PATIENT
  Age: 77 Year
  Sex: Male
  Weight: 80 kg

DRUGS (2)
  1. IPILIMUMAB [Suspect]
     Active Substance: IPILIMUMAB
     Indication: MALIGNANT MELANOMA
     Dosage: INDUCTION: DAY 1 OF CYCLES 1-4 (CYCLE=21 DAYS).?LAST ADMINISTERED DATE: 03/DEC/2014.?LAST ADMINISTER
     Route: 042
     Dates: start: 20141001, end: 20160316
  2. BEVACIZUMAB. [Suspect]
     Active Substance: BEVACIZUMAB
     Indication: MALIGNANT MELANOMA
     Dosage: INDUCTION: DAY 1 OF CYCLES 1-4 (CYCLE= 21 DAYS).?LAST ADMINISTERED DATE: 23/DEC/2014
     Route: 042
     Dates: start: 20141001, end: 20160316

REACTIONS (5)
  - Fall [Unknown]
  - Proteinuria [Unknown]
  - Hypertension [Unknown]
  - Amylase increased [Unknown]
  - Haematuria [Recovered/Resolved]

NARRATIVE: CASE EVENT DATE: 20160119
